FAERS Safety Report 4342611-8 (Version None)
Quarter: 2004Q2

REPORT INFORMATION
  Report Type: 
  Country: None (occurrence: None)
  Receive Date: 20040416
  Receipt Date: 20040405
  Transmission Date: 20050107
  Serious: Yes (Hospitalization)
  Sender: FDA-Public Use
  Company Number: 2004GB00799

PATIENT
  Age: 62 Year
  Sex: Male

DRUGS (5)
  1. ATENOLOL [Suspect]
     Dosage: 50 MG DAILY PO
     Route: 048
     Dates: start: 20040126
  2. PRAVASTATIN [Suspect]
     Indication: MYOCARDIAL INFARCTION
     Dosage: 40 MG DAILY PO
     Route: 048
     Dates: start: 20040126, end: 20040126
  3. ASPIRIN [Concomitant]
  4. TEMAZEPAM [Concomitant]
  5. PERINDOPRIL [Concomitant]

REACTIONS (3)
  - MYOPATHY [None]
  - MYOSITIS [None]
  - VASCULITIS [None]
